FAERS Safety Report 7932992-8 (Version None)
Quarter: 2011Q4

REPORT INFORMATION
  Report Type: 
  Country: None (occurrence: None)
  Receive Date: 20111122
  Receipt Date: 20111118
  Transmission Date: 20120403
  Serious: Yes (Death, Hospitalization, Other)
  Sender: FDA-Public Use
  Company Number: PHHY2009TW60979

PATIENT
  Sex: Female

DRUGS (1)
  1. GLEEVEC [Suspect]
     Indication: GASTROINTESTINAL STROMAL TUMOUR
     Dosage: 300 MG, UNK
     Route: 048
     Dates: start: 20071208

REACTIONS (10)
  - OCCULT BLOOD [None]
  - CONSTIPATION [None]
  - METASTASIS [None]
  - DYSURIA [None]
  - ABDOMINAL PAIN [None]
  - DRUG INEFFECTIVE [None]
  - RASH [None]
  - GENERAL PHYSICAL CONDITION ABNORMAL [None]
  - DECREASED APPETITE [None]
  - DEATH [None]
